FAERS Safety Report 12437585 (Version 5)
Quarter: 2016Q3

REPORT INFORMATION
  Report Type: Spontaneous
  Country: US (occurrence: US)
  Receive Date: 20160606
  Receipt Date: 20160812
  Transmission Date: 20161109
  Serious: Yes (Hospitalization, Other)
  Sender: FDA-Public Use
  Company Number: US-ELI_LILLY_AND_COMPANY-US201606000689

PATIENT
  Age: 27 Year
  Sex: Female
  Weight: 65.08 kg

DRUGS (15)
  1. TYVASO [Suspect]
     Active Substance: TREPROSTINIL
     Indication: PULMONARY ARTERIAL HYPERTENSION
     Dosage: 36 BREATHS, UNKNOWN
     Route: 055
     Dates: start: 20150325
  2. VITAMIN B12 [Concomitant]
     Active Substance: CYANOCOBALAMIN
     Indication: SUPPLEMENTATION THERAPY
     Dosage: 1 TAB, UNKNOWN
     Route: 048
     Dates: start: 20160205
  3. BERAPROST SODIUM [Suspect]
     Active Substance: BERAPROST SODIUM
     Indication: PULMONARY ARTERIAL HYPERTENSION
     Dosage: 120 MG, UNKNOWN
     Route: 048
     Dates: start: 20150701
  4. TYVASO [Suspect]
     Active Substance: TREPROSTINIL
     Dosage: 3 BREATHS,QID
     Route: 055
  5. LASIX [Concomitant]
     Active Substance: FUROSEMIDE
     Indication: PULMONARY ARTERIAL HYPERTENSION
     Dosage: 60 MG, UNKNOWN
     Route: 048
     Dates: start: 20160113
  6. OXYGEN. [Concomitant]
     Active Substance: OXYGEN
     Indication: PULMONARY ARTERIAL HYPERTENSION
     Dosage: 2 L/MIN, PRN
     Route: 055
     Dates: start: 20151219
  7. TYVASO [Suspect]
     Active Substance: TREPROSTINIL
     Dosage: 3-9 BREATHS, QID
     Route: 055
     Dates: start: 20160212
  8. LASIX [Concomitant]
     Active Substance: FUROSEMIDE
     Dosage: 80 MG, QD
     Route: 048
  9. TYVASO [Suspect]
     Active Substance: TREPROSTINIL
     Dosage: 9 BREATHS  QID
     Route: 055
     Dates: start: 20150506
  10. BERAPROST SODIUM [Suspect]
     Active Substance: BERAPROST SODIUM
     Dosage: 30 UG, QID
     Route: 048
     Dates: start: 20150715, end: 20160523
  11. LASIX [Concomitant]
     Active Substance: FUROSEMIDE
     Dosage: 40 MG, UNKNOWN
     Route: 042
  12. ADCIRCA [Suspect]
     Active Substance: TADALAFIL
     Indication: PULMONARY ARTERIAL HYPERTENSION
     Dosage: 40 MG, QD
     Route: 048
  13. LETAIRIS [Suspect]
     Active Substance: AMBRISENTAN
     Indication: PULMONARY ARTERIAL HYPERTENSION
     Dosage: 10 MG, QD
     Route: 048
  14. XARELTO [Suspect]
     Active Substance: RIVAROXABAN
     Indication: PROPHYLAXIS
     Dosage: 20 MG, QD
     Route: 065
     Dates: start: 201512, end: 20160322
  15. ELIQUIS [Concomitant]
     Active Substance: APIXABAN
     Indication: THROMBOSIS PROPHYLAXIS
     Dosage: 5 MG, BID
     Route: 065
     Dates: start: 20160522

REACTIONS (13)
  - Pulmonary artery thrombosis [Unknown]
  - Pulmonary hypertension [Recovered/Resolved]
  - Right ventricular failure [Unknown]
  - Pulmonary hypertension [Unknown]
  - Rash [Recovered/Resolved]
  - Mitral valve prolapse [Unknown]
  - Headache [Recovered/Resolved]
  - Tricuspid valve incompetence [Unknown]
  - Malaise [Unknown]
  - Pyrexia [Unknown]
  - Hypotension [Unknown]
  - Sinus node dysfunction [Unknown]
  - Pulmonary valve incompetence [Unknown]

NARRATIVE: CASE EVENT DATE: 20151219
